FAERS Safety Report 18260449 (Version 2)
Quarter: 2020Q3

REPORT INFORMATION
  Report Type: Spontaneous
  Country: IT (occurrence: IT)
  Receive Date: 20200914
  Receipt Date: 20200915
  Transmission Date: 20201103
  Serious: No
  Sender: FDA-Public Use
  Company Number: IT-TEVA-2020-IT-1825939

PATIENT
  Age: 80 Year
  Sex: Male

DRUGS (11)
  1. INHIXA 10,000 IU (100 MG)/1 ML SOLUTION FOR INJECTION [Interacting]
     Active Substance: ENOXAPARIN SODIUM
     Indication: IMMOBILISATION PROLONGED
     Dosage: UNIT DOSE 4000KU?INHIXA 10,000 IU (100 MG)/1 ML SOLUTION FOR INJECTION
     Route: 058
     Dates: start: 20200810, end: 20200812
  2. JUMEX [Concomitant]
     Active Substance: SELEGILINE HYDROCHLORIDE
  3. DIBASE [Concomitant]
     Active Substance: CHOLECALCIFEROL
  4. DEPAKIN [Concomitant]
     Active Substance: VALPROATE SODIUM
  5. SINEMET [Concomitant]
     Active Substance: CARBIDOPA\LEVODOPA
  6. CLOPIDOGREL [Suspect]
     Active Substance: CLOPIDOGREL BISULFATE
     Indication: CEREBRAL ISCHAEMIA
     Dosage: UNIT DOSE 75MG
     Route: 048
  7. DUTASTERIDE. [Concomitant]
     Active Substance: DUTASTERIDE
  8. ESOMEPRAZOLE SODIUM. [Concomitant]
     Active Substance: ESOMEPRAZOLE SODIUM
  9. HYDROCHLOROTHIAZIDE. [Concomitant]
     Active Substance: HYDROCHLOROTHIAZIDE
  10. RAMIPRIL. [Concomitant]
     Active Substance: RAMIPRIL
  11. ATORVASTATIN [Concomitant]
     Active Substance: ATORVASTATIN

REACTIONS (2)
  - Haematuria [Recovering/Resolving]
  - Drug interaction [Recovering/Resolving]

NARRATIVE: CASE EVENT DATE: 20200811
